FAERS Safety Report 24893559 (Version 2)
Quarter: 2025Q1

REPORT INFORMATION
  Report Type: Spontaneous
  Country: SK (occurrence: SK)
  Receive Date: 20250128
  Receipt Date: 20250217
  Transmission Date: 20250408
  Serious: Yes (Other)
  Sender: JOHNSON AND JOHNSON
  Company Number: SK-JNJFOC-20250133262

PATIENT
  Sex: Female

DRUGS (4)
  1. TREMFYA [Suspect]
     Active Substance: GUSELKUMAB
     Indication: Product used for unknown indication
     Dates: start: 20241129
  2. TREMFYA [Suspect]
     Active Substance: GUSELKUMAB
  3. TREMFYA [Suspect]
     Active Substance: GUSELKUMAB
  4. CODEINE\HERBALS [Suspect]
     Active Substance: CODEINE\HERBALS

REACTIONS (14)
  - Pneumonia [Unknown]
  - Arthralgia [Unknown]
  - Myalgia [Unknown]
  - Dizziness [Unknown]
  - Nausea [Unknown]
  - Urticaria [Not Recovered/Not Resolved]
  - Face oedema [Unknown]
  - Sluggishness [Unknown]
  - Somnolence [Unknown]
  - Gait inability [Unknown]
  - Chest discomfort [Unknown]
  - Pallor [Unknown]
  - Abdominal pain [Not Recovered/Not Resolved]
  - Infection [Recovered/Resolved]

NARRATIVE: CASE EVENT DATE: 20241130
